FAERS Safety Report 15663033 (Version 2)
Quarter: 2020Q4

REPORT INFORMATION
  Report Type: Spontaneous
  Country: US (occurrence: US)
  Receive Date: 20181127
  Receipt Date: 20201119
  Transmission Date: 20210113
  Serious: No
  Sender: FDA-Public Use
  Company Number: US-SA-2018SA322169

PATIENT

DRUGS (2)
  1. DUPIXENT [Suspect]
     Active Substance: DUPILUMAB
     Dosage: 300 MG, QOW
     Route: 058
     Dates: start: 201811
  2. DUPIXENT [Suspect]
     Active Substance: DUPILUMAB
     Dosage: 600 MG, 1X
     Route: 058
     Dates: start: 201811, end: 201811

REACTIONS (9)
  - Lymphadenopathy [Unknown]
  - Pruritus [Unknown]
  - Dry eye [Unknown]
  - Skin fissures [Unknown]
  - Eye pruritus [Unknown]
  - Product use issue [Unknown]
  - Skin exfoliation [Unknown]
  - Eczema [Unknown]
  - Injection site reaction [Unknown]

NARRATIVE: CASE EVENT DATE: 20181113
